FAERS Safety Report 9033902 (Version 1)
Quarter: 2013Q1

REPORT INFORMATION
  Report Type: Spontaneous
  Country: US (occurrence: US)
  Receive Date: 20130128
  Receipt Date: 20130128
  Transmission Date: 20140127
  Serious: Yes (Hospitalization)
  Sender: FDA-Public Use
  Company Number: US-AMGEN-USASP2012069373

PATIENT
  Age: 61 Year
  Sex: Male
  Weight: 111.11 kg

DRUGS (7)
  1. ENBREL [Suspect]
     Indication: PRODUCT USED FOR UNKNOWN INDICATION
     Dosage: 50 MG, QWK
     Route: 058
  2. HUMIRA [Concomitant]
     Dosage: 40 MG/0.8
  3. METOPROLOL TARTRATE [Concomitant]
     Dosage: 50 MG, UNK
  4. LOSARTAN POTASSSIUM [Concomitant]
     Dosage: 100 MG, UNK
  5. FUROSEMIDE [Concomitant]
     Dosage: 8 MG/ML, UNK
  6. MULTIVITAMIN                       /07504101/ [Concomitant]
     Dosage: UNK
  7. TIKOSYN [Concomitant]
     Dosage: 125 MCG

REACTIONS (1)
  - Bacterial infection [Unknown]
